FAERS Safety Report 17078121 (Version 1)
Quarter: 2019Q4

REPORT INFORMATION
  Report Type: Report from Study
  Country: US (occurrence: US)
  Receive Date: 20191126
  Receipt Date: 20191126
  Transmission Date: 20200122
  Serious: Yes (Hospitalization)
  Sender: FDA-Public Use
  Company Number: US-ACTELION-A-US2016-144017

PATIENT
  Age: 75 Year
  Sex: Female

DRUGS (20)
  1. HUMULIN NOS [Concomitant]
     Active Substance: INSULIN HUMAN
  2. NEURONTIN [Concomitant]
     Active Substance: GABAPENTIN
  3. CENTRUM SILVER [Concomitant]
     Active Substance: MINERALS\VITAMINS
  4. LASIX [Concomitant]
     Active Substance: FUROSEMIDE
     Dosage: 20 MG, UNK
  5. ASPIRIN. [Concomitant]
     Active Substance: ASPIRIN
     Dosage: 325 MG, UNK
  6. LUMIGAN [Concomitant]
     Active Substance: BIMATOPROST
  7. CITRACAL MAXIMUM [Concomitant]
     Active Substance: CALCIUM CITRATE\CHOLECALCIFEROL
     Dosage: 315-250 MG
  8. PROTONIX [Concomitant]
     Active Substance: PANTOPRAZOLE SODIUM
  9. OPSUMIT [Suspect]
     Active Substance: MACITENTAN
     Indication: PULMONARY ARTERIAL HYPERTENSION
     Dosage: 10 MG, QD
     Route: 048
     Dates: start: 20140707
  10. OPSUMIT [Suspect]
     Active Substance: MACITENTAN
     Dosage: UNK
     Route: 048
  11. SYNTHROID [Concomitant]
     Active Substance: LEVOTHYROXINE SODIUM
     Dosage: 137 MCG, UNK
  12. FOSAMAX [Concomitant]
     Active Substance: ALENDRONATE SODIUM
  13. ZANTAC [Concomitant]
     Active Substance: RANITIDINE HYDROCHLORIDE
     Dosage: 300 MG, UNK
  14. PLAVIX [Concomitant]
     Active Substance: CLOPIDOGREL BISULFATE
     Dosage: 75 MG, UNK
  15. NOVOLIN [Concomitant]
     Active Substance: INSULIN HUMAN
     Dosage: (70-30) 100 UNI
  16. VITAMIN D [Concomitant]
     Active Substance: VITAMIN D NOS
  17. ZOCOR [Concomitant]
     Active Substance: SIMVASTATIN
     Dosage: 40 MG, UNK
  18. FOLIC ACID. [Concomitant]
     Active Substance: FOLIC ACID
  19. COREG [Concomitant]
     Active Substance: CARVEDILOL
     Dosage: 3.125 MG, UNK
  20. OMEGA 3 [Concomitant]
     Active Substance: OMEGA-3 FATTY ACIDS
     Dosage: 1200 MG, UNK

REACTIONS (20)
  - Osteoporosis [Unknown]
  - Vertigo [Recovered/Resolved]
  - Muscle spasms [Not Recovered/Not Resolved]
  - Influenza like illness [Recovered/Resolved]
  - Haemoglobin decreased [Not Recovered/Not Resolved]
  - Blood glucose fluctuation [Not Recovered/Not Resolved]
  - Productive cough [Recovering/Resolving]
  - Chest discomfort [Unknown]
  - Melaena [Not Recovered/Not Resolved]
  - Depressed mood [Not Recovered/Not Resolved]
  - Chills [Recovered/Resolved]
  - Fatigue [Unknown]
  - Oedema peripheral [Not Recovered/Not Resolved]
  - Dementia Alzheimer^s type [Unknown]
  - Cardiac pacemaker replacement [Unknown]
  - Diarrhoea [Recovered/Resolved]
  - Platelet count decreased [Unknown]
  - Somnolence [Unknown]
  - Cough [Recovering/Resolving]
  - Arthralgia [Unknown]

NARRATIVE: CASE EVENT DATE: 20161005
